FAERS Safety Report 4789507-5 (Version None)
Quarter: 2005Q3

REPORT INFORMATION
  Report Type: 
  Country: None (occurrence: None)
  Receive Date: 20050914
  Receipt Date: 20040917
  Transmission Date: 20060218
  Serious: Yes (Hospitalization)
  Sender: FDA-Public Use
  Company Number: 163-20785-04090428

PATIENT
  Age: 74 Year
  Sex: Male

DRUGS (3)
  1. THALOMID [Suspect]
     Indication: METASTASES TO BONE
     Dosage: 150 MG, DAILY, ORAL
     Route: 048
     Dates: start: 20030101
  2. THALOMID [Suspect]
     Indication: RENAL CELL CARCINOMA STAGE UNSPECIFIED
     Dosage: 150 MG, DAILY, ORAL
     Route: 048
     Dates: start: 20030101
  3. ZOMETA [Concomitant]

REACTIONS (3)
  - DEHYDRATION [None]
  - INTESTINAL OBSTRUCTION [None]
  - RENAL FAILURE [None]
